FAERS Safety Report 9657407 (Version 2)
Quarter: 2013Q4

REPORT INFORMATION
  Report Type: Spontaneous
  Country: FR (occurrence: FR)
  Receive Date: 20131030
  Receipt Date: 20131121
  Transmission Date: 20140711
  Serious: Yes (Hospitalization)
  Sender: FDA-Public Use
  Company Number: FR-BRISTOL-MYERS SQUIBB COMPANY-19626134

PATIENT
  Age: 37 Year
  Sex: Female

DRUGS (1)
  1. YERVOY [Suspect]
     Indication: METASTATIC MALIGNANT MELANOMA
     Dosage: 4TH COURSE 26SEP13
     Route: 042
     Dates: start: 20130726

REACTIONS (2)
  - Ascites [Unknown]
  - Brief psychotic disorder with marked stressors [Recovered/Resolved]
